FAERS Safety Report 9366750 (Version 1)
Quarter: 2013Q2

REPORT INFORMATION
  Report Type: Spontaneous
  Country: AT (occurrence: AT)
  Receive Date: 20130625
  Receipt Date: 20130625
  Transmission Date: 20140414
  Serious: Yes (Other)
  Sender: FDA-Public Use
  Company Number: AT-MYLANLABS-2013S1013423

PATIENT
  Age: 27 Year
  Sex: Female

DRUGS (4)
  1. ETOPOSIDE [Suspect]
     Indication: EWING^S SARCOMA METASTATIC
     Dosage: 150MG/M2/DAY ON DAYS 1-3; PART OF EURO EWING-08 PROTOCOL
     Route: 065
  2. IFOSFAMIDE [Suspect]
     Indication: EWING^S SARCOMA METASTATIC
     Dosage: 3000MG/M2/DAY ON DAYS 1-3; PART OF EURO EWING-08 PROTOCOL
     Route: 065
  3. DOXORUBICIN [Suspect]
     Indication: EWING^S SARCOMA METASTATIC
     Dosage: 20MG/M2/DAY ON DAYS 1-3; PART OF EURO EWING-08 PROTOCOL
     Route: 065
  4. VINCRISTINE [Suspect]
     Indication: EWING^S SARCOMA METASTATIC
     Dosage: 2MG/DAY ON DAY 1
     Route: 065

REACTIONS (3)
  - Oligohydramnios [Recovered/Resolved]
  - Foetal death [Recovered/Resolved]
  - Exposure during pregnancy [Recovered/Resolved]
